FAERS Safety Report 11124254 (Version 1)
Quarter: 2015Q2

REPORT INFORMATION
  Report Type: Spontaneous
  Country: US (occurrence: None)
  Receive Date: 20150519
  Receipt Date: 20150519
  Transmission Date: 20150821
  Serious: Yes (Other)
  Sender: FDA-Public Use
  Company Number: None

PATIENT
  Age: 70 Year
  Sex: Female

DRUGS (13)
  1. AMPYRA [Suspect]
     Active Substance: DALFAMPRIDINE
     Indication: MULTIPLE SCLEROSIS
     Route: 048
     Dates: start: 201106, end: 201411
  2. METHYLPHENIDATE RITALIN) [Concomitant]
  3. LISNIOPRIL (PRINIVILIZESTRIL) [Concomitant]
  4. FOSAMAX [Concomitant]
     Active Substance: ALENDRONATE SODIUM
  5. DULOXETINE (CYMBALTA) [Concomitant]
  6. POTASSIUM CHLORIDE (K-TAB) [Concomitant]
  7. TEMAZEPAM (RESTORIL) [Concomitant]
  8. FAMOTIDINE (PEPCID) [Concomitant]
  9. EZETIMIBE (ZETIA) [Concomitant]
  10. NEURONTIN [Concomitant]
     Active Substance: GABAPENTIN
  11. AMLODIPINE (NORVASC) [Concomitant]
  12. CALCIUM CITRATE-VITAMIN D3 (CITRUS CALCIUM) [Concomitant]
  13. HYDROCHLOROTHIAZIDE (ESIDRIX/HYDRODIURIL) [Concomitant]

REACTIONS (1)
  - Facial pain [None]

NARRATIVE: CASE EVENT DATE: 20141218
